FAERS Safety Report 5240208-9 (Version None)
Quarter: 2007Q1

REPORT INFORMATION
  Report Type: 
  Country: None (occurrence: None)
  Receive Date: 20061201
  Receipt Date: 20060918
  Transmission Date: 20070707
  Serious: No
  Sender: FDA-Public Use
  Company Number: 2006PV021439

PATIENT
  Age: 66 Year
  Sex: Female
  Weight: 82.1011 kg

DRUGS (6)
  1. BYETTA [Suspect]
     Indication: DIABETES MELLITUS NON-INSULIN-DEPENDENT
     Dosage: 5 MCG;BID;SC
     Route: 058
     Dates: start: 20060915, end: 20060915
  2. GLIPIZIDE ER [Concomitant]
  3. AVANDIA [Concomitant]
  4. HUMALOG [Concomitant]
  5. PREVACID [Concomitant]
  6. NEXIUM [Concomitant]

REACTIONS (6)
  - ABDOMINAL DISTENSION [None]
  - ANOREXIA [None]
  - BLOOD GLUCOSE DECREASED [None]
  - NERVOUSNESS [None]
  - SOMNOLENCE [None]
  - VOMITING [None]
